FAERS Safety Report 17845825 (Version 2)
Quarter: 2020Q2

REPORT INFORMATION
  Report Type: Spontaneous
  Country: US (occurrence: US)
  Receive Date: 20200601
  Receipt Date: 20200629
  Transmission Date: 20200714
  Serious: Yes (Death, Other)
  Sender: FDA-Public Use
  Company Number: US-GLAXOSMITHKLINE-US2020AMR089933

PATIENT
  Age: 69 Year
  Sex: Male
  Weight: 86 kg

DRUGS (1)
  1. COREG CR [Suspect]
     Active Substance: CARVEDILOL PHOSPHATE
     Indication: PRODUCT USED FOR UNKNOWN INDICATION
     Dosage: UNK
     Route: 065
     Dates: start: 2014, end: 20200513

REACTIONS (4)
  - Cerebrovascular accident [Unknown]
  - Ischaemic cardiomyopathy [Unknown]
  - Cerebrovascular accident [Fatal]
  - Myocardial infarction [Fatal]

NARRATIVE: CASE EVENT DATE: 201808
